FAERS Safety Report 10284707 (Version 1)
Quarter: 2014Q3

REPORT INFORMATION
  Report Type: Report from Study
  Country: SG (occurrence: SG)
  Receive Date: 20140708
  Receipt Date: 20140708
  Transmission Date: 20150326
  Serious: Yes (Hospitalization)
  Sender: FDA-Public Use
  Company Number: SG-GLAXOSMITHKLINE-B1006059A

PATIENT
  Sex: Male
  Weight: 60 kg

DRUGS (4)
  1. CARBOPLATIN. [Concomitant]
     Active Substance: CARBOPLATIN
     Dosage: 465MG SINGLE DOSE
     Route: 042
     Dates: start: 20140603, end: 20140604
  2. OFATUMUMAB [Suspect]
     Active Substance: OFATUMUMAB
     Indication: DIFFUSE LARGE B-CELL LYMPHOMA
     Dates: start: 20140602
  3. ETOPOSIDE. [Concomitant]
     Active Substance: ETOPOSIDE
     Dosage: 160MG PER DAY
     Route: 042
     Dates: start: 20140602, end: 20140604
  4. IFOSPHAMIDE [Concomitant]
     Active Substance: IFOSFAMIDE
     Dosage: 8MG SINGLE DOSE
     Route: 042
     Dates: start: 20140603, end: 20140604

REACTIONS (1)
  - Back pain [Recovered/Resolved]

NARRATIVE: CASE EVENT DATE: 20140613
